FAERS Safety Report 8887780 (Version 2)
Quarter: 2013Q1

REPORT INFORMATION
  Report Type: Spontaneous
  Country: GB (occurrence: GB)
  Receive Date: 20121106
  Receipt Date: 20130131
  Transmission Date: 20140127
  Serious: Yes (Hospitalization, Disabling)
  Sender: FDA-Public Use
  Company Number: GB-009507513-1211GBR000039

PATIENT
  Age: 73 Year
  Sex: Female
  Weight: 50.91 kg

DRUGS (9)
  1. SINEMET [Suspect]
     Dosage: 1 AND A HALF FIVE TIMES A DAY
     Route: 048
  2. SINEMET-PLUS [Suspect]
     Dosage: 1 DF, FIVE TIMES A DAY
     Dates: start: 201211
  3. SINEMET [Suspect]
     Dosage: 1 DF, FIVE TIMES A DAY
     Dates: start: 201211
  4. TEGRETOL [Concomitant]
     Indication: EPILEPSY
     Dosage: 200 MG, BID
     Dates: start: 1994
  5. AMANTADINE HYDROCHLORIDE [Concomitant]
     Indication: PARKINSON^S DISEASE
     Dosage: 100 MG, QD
     Dates: start: 2002
  6. FOLIC ACID [Concomitant]
     Indication: FOLATE DEFICIENCY
     Dosage: 5 MG, QD
     Dates: start: 2009
  7. HYDROXOCOBALAMIN [Concomitant]
     Indication: VITAMIN B12 DEFICIENCY
     Dosage: 1 ML, 3/12LY
     Dates: start: 2009
  8. DIAZEPAM [Concomitant]
     Indication: AGITATION
     Dosage: 2 MG, PRN
     Dates: start: 201208
  9. DIAZEPAM [Concomitant]
     Indication: HALLUCINATION

REACTIONS (4)
  - Respiratory tract infection [Unknown]
  - Hallucination [Not Recovered/Not Resolved]
  - Product quality issue [Unknown]
  - Incorrect dose administered [Unknown]
